FAERS Safety Report 17238392 (Version 1)
Quarter: 2020Q1

REPORT INFORMATION
  Report Type: Spontaneous
  Country: JP (occurrence: JP)
  Receive Date: 20200106
  Receipt Date: 20200106
  Transmission Date: 20200409
  Serious: Yes (Other)
  Sender: FDA-Public Use
  Company Number: JP-ASTRAZENECA-2018SF47060

PATIENT
  Age: 22712 Day
  Sex: Female
  Weight: 48 kg

DRUGS (5)
  1. LYNPARZA [Suspect]
     Active Substance: OLAPARIB
     Indication: OVARIAN CANCER
     Route: 048
     Dates: start: 20190109, end: 201902
  2. PRIMPERAN [Suspect]
     Active Substance: METOCLOPRAMIDE HYDROCHLORIDE
     Indication: PROPHYLAXIS OF NAUSEA AND VOMITING
     Dosage: 5.0MG AS REQUIRED
     Route: 048
     Dates: start: 20180905, end: 20180920
  3. LYNPARZA [Suspect]
     Active Substance: OLAPARIB
     Indication: OVARIAN CANCER
     Route: 048
     Dates: start: 20180905, end: 20181016
  4. LYNPARZA [Suspect]
     Active Substance: OLAPARIB
     Indication: OVARIAN CANCER
     Route: 048
     Dates: start: 20181121, end: 20181219
  5. LYNPARZA [Suspect]
     Active Substance: OLAPARIB
     Indication: OVARIAN CANCER
     Route: 048
     Dates: start: 20190109, end: 201902

REACTIONS (10)
  - Carbohydrate antigen 125 increased [Unknown]
  - Nausea [Recovering/Resolving]
  - Metastases to lung [Unknown]
  - Fatigue [Recovering/Resolving]
  - Cough [Unknown]
  - Malignant neoplasm progression [Unknown]
  - Malignant pleural effusion [Unknown]
  - Anaemia [Recovered/Resolved]
  - Metastases to the mediastinum [Unknown]
  - Malaise [Recovering/Resolving]

NARRATIVE: CASE EVENT DATE: 20180906
